FAERS Safety Report 10312847 (Version 1)
Quarter: 2014Q3

REPORT INFORMATION
  Report Type: Spontaneous
  Country: CA (occurrence: CA)
  Receive Date: 20140718
  Receipt Date: 20140718
  Transmission Date: 20150326
  Serious: Yes (Other)
  Sender: FDA-Public Use
  Company Number: CA-TEVA-494619USA

PATIENT
  Age: 78 Year
  Sex: Female
  Weight: 61.29 kg

DRUGS (19)
  1. IRBESARTAN AND HYDROCHLOROTHIAZIDE [Suspect]
     Active Substance: HYDROCHLOROTHIAZIDE\IRBESARTAN
     Indication: PRODUCT USED FOR UNKNOWN INDICATION
     Dosage: 1 DOSAGE FORMS
     Route: 048
  2. AVALIDE [Concomitant]
     Active Substance: HYDROCHLOROTHIAZIDE\IRBESARTAN
     Dosage: 150/12.5 MG
  3. PMS-HYDROCHLOROTHIAZIDE [Concomitant]
  4. PMS-RANITIDINE [Concomitant]
  5. APO-OFLOXACIN [Concomitant]
     Dosage: SOLUTION OPHTHALMIC
  6. PMS-RANITIDINE [Concomitant]
  7. PMS-RANITIDINE [Concomitant]
  8. RAN-IRBESARTAN HCTZ [Concomitant]
  9. RATIO-IRBESARTAN HCTZ [Concomitant]
  10. NORVASC [Concomitant]
     Active Substance: AMLODIPINE BESYLATE
  11. VOLTAREN [Concomitant]
     Active Substance: DICLOFENAC SODIUM
     Dosage: SOLUTION OPHTHALMIC
  12. AVAPRO [Concomitant]
     Active Substance: IRBESARTAN
  13. RATIO-PREDNISOLONE [Concomitant]
     Active Substance: PREDNISOLONE
     Dosage: SUSPENSION OPHTHALMIC
  14. SANDOZ IRBESARTAN HCTZ [Concomitant]
  15. APO-AMLODIPINE [Concomitant]
  16. APO-OMEPRAZOLE [Concomitant]
     Active Substance: OMEPRAZOLE
     Dosage: CAPSULE, DELAYED RELEASE
  17. NASONEX [Concomitant]
     Active Substance: MOMETASONE FUROATE
     Dosage: SPRAY, METERED DOSE
  18. PMS-AMLODIPINE [Concomitant]
  19. TEVA-RABEPRAZOLE [Concomitant]
     Active Substance: RABEPRAZOLE

REACTIONS (12)
  - Gait disturbance [Recovered/Resolved]
  - Musculoskeletal pain [Recovered/Resolved]
  - Neck pain [Recovered/Resolved]
  - Weight decreased [Recovered/Resolved]
  - Aphagia [Recovered/Resolved]
  - Arthralgia [Recovered/Resolved]
  - Myalgia [Recovered/Resolved]
  - Pain [Recovered/Resolved]
  - Product substitution issue [Recovered/Resolved]
  - Abdominal discomfort [Recovered/Resolved]
  - Abdominal pain upper [Recovered/Resolved]
  - Pain in extremity [Recovered/Resolved]
